FAERS Safety Report 13292885 (Version 6)
Quarter: 2017Q3

REPORT INFORMATION
  Report Type: Spontaneous
  Country: US (occurrence: US)
  Receive Date: 20170303
  Receipt Date: 20170817
  Transmission Date: 20171127
  Serious: Yes (Other)
  Sender: FDA-Public Use
  Company Number: PHEH2017US006480

PATIENT
  Sex: Female
  Weight: 58.96 kg

DRUGS (4)
  1. ZOFRAN [Suspect]
     Active Substance: ONDANSETRON HYDROCHLORIDE
     Indication: VOMITING IN PREGNANCY
     Dosage: 1 DF, TID
     Route: 048
     Dates: start: 20120420, end: 20121120
  2. ONDANSETRON [Suspect]
     Active Substance: ONDANSETRON
     Indication: VOMITING IN PREGNANCY
     Dosage: 1 DF, Q8H
     Route: 048
     Dates: start: 20120420, end: 20121104
  3. ZOFRAN ODT [Suspect]
     Active Substance: ONDANSETRON HYDROCHLORIDE
     Indication: VOMITING IN PREGNANCY
     Dosage: 1 DF, PRN
     Route: 048
  4. ONDANSETRON [Suspect]
     Active Substance: ONDANSETRON
     Indication: VOMITING IN PREGNANCY
     Dosage: 1 DF, Q8H
     Route: 048
     Dates: start: 20120706, end: 20121104

REACTIONS (21)
  - Amniotic cavity infection [Unknown]
  - Maternal exposure during pregnancy [Unknown]
  - Haemorrhoids [Unknown]
  - Musculoskeletal pain [Unknown]
  - Ligament pain [Unknown]
  - Foetal hypokinesia [Unknown]
  - Adenoma benign [Unknown]
  - Uterine contractions during pregnancy [Unknown]
  - Emotional distress [Unknown]
  - Back pain [Unknown]
  - Anaemia [Unknown]
  - Constipation [Unknown]
  - Infarction [Unknown]
  - Sciatica [Unknown]
  - Proctalgia [Unknown]
  - Tachycardia [Unknown]
  - Product use in unapproved indication [Unknown]
  - Pyrexia [Unknown]
  - Rectal haemorrhage [Unknown]
  - Pain in extremity [Unknown]
  - Anal fissure [Unknown]
